FAERS Safety Report 20091940 (Version 1)
Quarter: 2021Q4

REPORT INFORMATION
  Report Type: Spontaneous
  Country: BY (occurrence: BY)
  Receive Date: 20211119
  Receipt Date: 20211119
  Transmission Date: 20220303
  Serious: Yes (Other)
  Sender: FDA-Public Use
  Company Number: BY-ASTELLAS-2021US043447

PATIENT
  Age: 68 Year
  Sex: Female

DRUGS (4)
  1. RIBOMUSTIN [Suspect]
     Active Substance: BENDAMUSTINE HYDROCHLORIDE
     Indication: Chronic lymphocytic leukaemia
     Route: 042
     Dates: start: 20210715
  2. RIBOMUSTIN [Suspect]
     Active Substance: BENDAMUSTINE HYDROCHLORIDE
     Dosage: (CYCLIC)
     Route: 042
     Dates: start: 20210915, end: 20210916
  3. RIBOMUSTIN [Suspect]
     Active Substance: BENDAMUSTINE HYDROCHLORIDE
     Dosage: (REINTRODUCED)
     Route: 042
  4. RITUXIMAB [Concomitant]
     Active Substance: RITUXIMAB
     Indication: Product used for unknown indication
     Route: 065
     Dates: start: 20210915

REACTIONS (1)
  - Haematotoxicity [Not Recovered/Not Resolved]

NARRATIVE: CASE EVENT DATE: 20210915
